FAERS Safety Report 5514740-4 (Version None)
Quarter: 2007Q4

REPORT INFORMATION
  Report Type: 
  Country: None (occurrence: None)
  Receive Date: 20071113
  Receipt Date: 20071108
  Transmission Date: 20080405
  Serious: Yes (Other)
  Sender: FDA-Public Use
  Company Number: CA-ASTRAZENECA-2007UW26058

PATIENT
  Age: 81 Year
  Sex: Female

DRUGS (12)
  1. XYLOCAINE [Suspect]
     Route: 047
  2. ALPHAGAN [Suspect]
     Route: 047
  3. FLURBIPROFEN [Suspect]
     Route: 047
  4. PHENYLEPHRINE HYDROCHLORIDE [Suspect]
     Route: 047
  5. PREDNISOLONE [Suspect]
     Route: 047
  6. PROVIODINE [Suspect]
  7. TETRACAINE POLYGYL STERILE OPHTHALMIC SOLUTION [Suspect]
     Route: 047
  8. TROPICAMIDE [Suspect]
     Route: 047
  9. ZYMAR [Suspect]
     Route: 047
  10. APO HYDRO [Concomitant]
  11. APO-ACETAMINOPHEN [Concomitant]
  12. DIDROCAL [Concomitant]

REACTIONS (2)
  - EYE DISORDER [None]
  - INFLAMMATION [None]
